FAERS Safety Report 11757201 (Version 2)
Quarter: 2016Q1

REPORT INFORMATION
  Report Type: Spontaneous
  Country: US (occurrence: US)
  Receive Date: 20151120
  Receipt Date: 20160212
  Transmission Date: 20160525
  Serious: Yes (Death, Hospitalization, Other)
  Sender: FDA-Public Use
  Company Number: US-009507513-1511USA010944

PATIENT
  Sex: Male
  Weight: 111.11 kg

DRUGS (2)
  1. JANUVIA [Suspect]
     Active Substance: SITAGLIPTIN PHOSPHATE
     Dosage: 50 MG, UNK
     Route: 048
     Dates: start: 20120426
  2. JANUVIA [Suspect]
     Active Substance: SITAGLIPTIN PHOSPHATE
     Indication: TYPE 2 DIABETES MELLITUS
     Dosage: 100 MG, QD
     Route: 048
     Dates: start: 20110103, end: 20120524

REACTIONS (27)
  - Death [Fatal]
  - Cardiac failure congestive [Unknown]
  - Bradycardia [Unknown]
  - Adenocarcinoma pancreas [Unknown]
  - Cerebrovascular accident [Unknown]
  - Neuropathy peripheral [Unknown]
  - Normochromic normocytic anaemia [Unknown]
  - Vertigo positional [Unknown]
  - Knee operation [Unknown]
  - Mucosal dryness [Unknown]
  - Gastrointestinal disorder [Unknown]
  - Cerebrovascular accident [Unknown]
  - Spinal fusion surgery [Unknown]
  - Acute kidney injury [Unknown]
  - Appendicectomy [Unknown]
  - Hypoacusis [Unknown]
  - Pancreatitis [Unknown]
  - Localised intraabdominal fluid collection [Unknown]
  - Carpal tunnel decompression [Unknown]
  - Hypercholesterolaemia [Unknown]
  - Pleural effusion [Unknown]
  - Leukocytosis [Unknown]
  - Hypertension [Unknown]
  - Arthritis [Unknown]
  - Cataract operation [Unknown]
  - Tachycardia [Unknown]
  - Chest pain [Unknown]

NARRATIVE: CASE EVENT DATE: 2011
